FAERS Safety Report 10063642 (Version 2)
Quarter: 2014Q2

REPORT INFORMATION
  Report Type: Report from Study
  Country: US (occurrence: US)
  Receive Date: 20140407
  Receipt Date: 20140407
  Transmission Date: 20141212
  Serious: Yes (Hospitalization)
  Sender: FDA-Public Use
  Company Number: US-GILEAD-2014-0096999

PATIENT
  Age: 45 Year
  Sex: Female

DRUGS (5)
  1. EMTRICITABINE/TENOFOVIR DISOPROXIL FUMARATE [Suspect]
     Indication: HIV INFECTION
     Dosage: 1 DF, QD
     Route: 048
     Dates: start: 20070608
  2. EFAVIRENZ [Suspect]
     Indication: HIV INFECTION
     Dosage: 600 MG, QD
     Route: 048
     Dates: start: 20070608
  3. PLACEBO [Suspect]
     Indication: HIV INFECTION
     Dosage: 2 DF, QD
     Route: 048
  4. FROSINOR [Suspect]
     Indication: DEPRESSION
     Dosage: 20 MG, QD
     Route: 065
     Dates: start: 20070215
  5. CITALOPRAM [Concomitant]
     Indication: DEPRESSION

REACTIONS (2)
  - Gastrointestinal disorder [Unknown]
  - Dyspepsia [Recovered/Resolved]
